FAERS Safety Report 17093192 (Version 1)
Quarter: 2019Q4

REPORT INFORMATION
  Report Type: Spontaneous
  Country: DE (occurrence: DE)
  Receive Date: 20191129
  Receipt Date: 20191129
  Transmission Date: 20200122
  Serious: Yes (Other)
  Sender: FDA-Public Use
  Company Number: DE-TEVA-2019-DE-1145300

PATIENT
  Sex: Female

DRUGS (1)
  1. ESTREVA GEL [Suspect]
     Active Substance: ESTRADIOL
     Indication: OSTEOPOROSIS
     Dosage: ELBOW/SHOULDER/THIGH
     Route: 061

REACTIONS (3)
  - Nipple enlargement [Recovering/Resolving]
  - Off label use [Unknown]
  - Nipple disorder [Recovering/Resolving]
